FAERS Safety Report 7915724-9 (Version None)
Quarter: 2011Q4

REPORT INFORMATION
  Report Type: 
  Country: None (occurrence: None)
  Receive Date: 20111115
  Receipt Date: 20111108
  Transmission Date: 20120403
  Serious: Yes (Hospitalization)
  Sender: FDA-Public Use
  Company Number: JP-GLAXOSMITHKLINE-B0761911A

PATIENT
  Age: 3 Decade
  Sex: Male

DRUGS (4)
  1. LAMICTAL [Suspect]
     Indication: BIPOLAR DISORDER
     Dosage: 25MG PER DAY
     Route: 048
  2. LAMICTAL [Suspect]
     Dosage: 75MG PER DAY
     Route: 048
  3. LAMICTAL [Suspect]
     Dosage: 300MG PER DAY
     Route: 048
  4. LAMICTAL [Suspect]
     Dosage: 100MG PER DAY
     Route: 048

REACTIONS (3)
  - LOSS OF CONSCIOUSNESS [None]
  - DIZZINESS [None]
  - NAUSEA [None]
